FAERS Safety Report 19108886 (Version 1)
Quarter: 2021Q2

REPORT INFORMATION
  Report Type: Report from Study
  Country: BR (occurrence: BR)
  Receive Date: 20210408
  Receipt Date: 20210408
  Transmission Date: 20210717
  Serious: Yes (Death)
  Sender: FDA-Public Use
  Company Number: NVSC2020BR259914

PATIENT
  Sex: Female

DRUGS (3)
  1. COSENTYX [Suspect]
     Active Substance: SECUKINUMAB
     Dosage: 300 MG, UNKNOWN
     Route: 065
  2. COSENTYX [Suspect]
     Active Substance: SECUKINUMAB
     Dosage: 300 MG, UNKNOWN (MAR OR APRIL 2020)
     Route: 065
  3. COSENTYX [Suspect]
     Active Substance: SECUKINUMAB
     Indication: PSORIASIS
     Dosage: 300 MG, UNKNOWN
     Route: 065
     Dates: start: 2019

REACTIONS (14)
  - Scab [Unknown]
  - Pain in extremity [Unknown]
  - Weight increased [Unknown]
  - Gait disturbance [Unknown]
  - Pain [Unknown]
  - Breast cancer [Fatal]
  - Malaise [Unknown]
  - Influenza [Unknown]
  - Arthralgia [Recovered/Resolved]
  - Psoriasis [Not Recovered/Not Resolved]
  - Pyrexia [Unknown]
  - Wound [Not Recovered/Not Resolved]
  - Breast discolouration [Unknown]
  - Product dose omission issue [Unknown]
